FAERS Safety Report 7561954-8 (Version None)
Quarter: 2011Q2

REPORT INFORMATION
  Report Type: 
  Country: None (occurrence: None)
  Receive Date: 20110621
  Receipt Date: 20110614
  Transmission Date: 20111010
  Serious: Yes (Death)
  Sender: FDA-Public Use
  Company Number: PL-CELGENEUS-129-50794-11061960

PATIENT
  Sex: Male

DRUGS (10)
  1. MST [Concomitant]
     Route: 065
  2. ISOPTIN [Concomitant]
     Route: 065
  3. FUROSEMIDE [Concomitant]
     Route: 065
  4. TRAMADOL HYDROCHLORIDE [Concomitant]
     Route: 065
  5. FENTANYL-100 [Concomitant]
     Route: 065
  6. DOPAMINE HCL [Concomitant]
     Route: 065
  7. DOBUTREX [Concomitant]
     Route: 065
  8. VIDAZA [Suspect]
     Route: 050
  9. FLUCONAZOLE [Concomitant]
     Route: 065
  10. PALFIUM [Concomitant]
     Route: 065

REACTIONS (4)
  - CORONARY ARTERY DISEASE [None]
  - CARDIAC FAILURE CHRONIC [None]
  - MULTI-ORGAN FAILURE [None]
  - CARDIOGENIC SHOCK [None]
